FAERS Safety Report 10587440 (Version 2)
Quarter: 2015Q3

REPORT INFORMATION
  Report Type: Spontaneous
  Country: TW (occurrence: TW)
  Receive Date: 20141117
  Receipt Date: 20150723
  Transmission Date: 20151125
  Serious: Yes (Hospitalization, Other)
  Sender: FDA-Public Use
  Company Number: TW-JNJFOC-20141103356

PATIENT
  Age: 47 Year
  Sex: Female

DRUGS (11)
  1. TRIHEXYPHENIDYL [Suspect]
     Active Substance: TRIHEXYPHENIDYL
     Indication: SCHIZOPHRENIA, PARANOID TYPE
     Route: 065
  2. RISPERIDONE. [Suspect]
     Active Substance: RISPERIDONE
     Indication: SCHIZOPHRENIA, PARANOID TYPE
     Route: 048
  3. FLURAZEPAM [Suspect]
     Active Substance: FLURAZEPAM\FLURAZEPAM HYDROCHLORIDE
     Indication: SCHIZOPHRENIA, PARANOID TYPE
     Route: 065
  4. FLURAZEPAM [Suspect]
     Active Substance: FLURAZEPAM\FLURAZEPAM HYDROCHLORIDE
     Indication: SCHIZOPHRENIA, PARANOID TYPE
     Route: 065
  5. TRIHEXYPHENIDYL [Suspect]
     Active Substance: TRIHEXYPHENIDYL
     Indication: SCHIZOPHRENIA, PARANOID TYPE
     Route: 065
  6. RISPERIDONE. [Suspect]
     Active Substance: RISPERIDONE
     Indication: SCHIZOPHRENIA, PARANOID TYPE
     Route: 048
  7. CLONAZEPAM. [Suspect]
     Active Substance: CLONAZEPAM
     Indication: SCHIZOPHRENIA, PARANOID TYPE
     Route: 065
  8. MIDAZOLAM [Suspect]
     Active Substance: MIDAZOLAM\MIDAZOLAM HYDROCHLORIDE
     Indication: SCHIZOPHRENIA, PARANOID TYPE
     Route: 065
  9. RISPERIDONE. [Suspect]
     Active Substance: RISPERIDONE
     Indication: SCHIZOPHRENIA, PARANOID TYPE
     Route: 048
  10. CLONAZEPAM. [Suspect]
     Active Substance: CLONAZEPAM
     Indication: SCHIZOPHRENIA, PARANOID TYPE
     Route: 065
  11. MIDAZOLAM [Suspect]
     Active Substance: MIDAZOLAM\MIDAZOLAM HYDROCHLORIDE
     Indication: SCHIZOPHRENIA, PARANOID TYPE
     Route: 065

REACTIONS (14)
  - Decreased appetite [Unknown]
  - Weight increased [Unknown]
  - Social avoidant behaviour [Recovering/Resolving]
  - Suicidal ideation [Recovering/Resolving]
  - Intentional overdose [Unknown]
  - Rhabdomyolysis [Recovered/Resolved]
  - Decreased interest [Unknown]
  - Suicide attempt [Unknown]
  - Insomnia [Unknown]
  - Persecutory delusion [Recovering/Resolving]
  - Depressed mood [Recovering/Resolving]
  - Myoclonus [Unknown]
  - Hallucination, auditory [Recovering/Resolving]
  - Negative thoughts [Recovering/Resolving]
